FAERS Safety Report 25387049 (Version 2)
Quarter: 2025Q3

REPORT INFORMATION
  Report Type: Report from Study
  Country: EU (occurrence: EU)
  Receive Date: 20250602
  Receipt Date: 20250702
  Transmission Date: 20251021
  Serious: Yes (Life-Threatening, Hospitalization)
  Sender: PFIZER
  Company Number: EU-AstrazenecaRSG-0501-D926QC00001(Prod)000006

PATIENT
  Age: 35 Year
  Sex: Female

DRUGS (5)
  1. PACLITAXEL [Suspect]
     Active Substance: PACLITAXEL
     Indication: Triple negative breast cancer
     Route: 042
     Dates: start: 20241209, end: 20250303
  2. CARBOPLATIN [Suspect]
     Active Substance: CARBOPLATIN
     Indication: Triple negative breast cancer
     Dosage: UNK, ONCE EVERY 3 WK
     Route: 042
     Dates: start: 20241209, end: 20250303
  3. PEMBROLIZUMAB [Suspect]
     Active Substance: PEMBROLIZUMAB
     Indication: Triple negative breast cancer
     Dosage: 200 MG
     Route: 042
     Dates: start: 20241209, end: 20250303
  4. CETIRIZINE [Concomitant]
     Active Substance: CETIRIZINE HYDROCHLORIDE
     Indication: Prophylaxis
     Route: 048
     Dates: start: 20241208, end: 20250303
  5. DEXAMETHASONE ACETATE [Concomitant]
     Active Substance: DEXAMETHASONE ACETATE
     Dosage: 10 MG
     Route: 048
     Dates: start: 20241206, end: 20241212

REACTIONS (2)
  - Hyponatraemia [Recovered/Resolved]
  - Febrile neutropenia [Recovered/Resolved]

NARRATIVE: CASE EVENT DATE: 20250316
